FAERS Safety Report 17898411 (Version 2)
Quarter: 2020Q3

REPORT INFORMATION
  Report Type: Report from Study
  Country: AU (occurrence: AU)
  Receive Date: 20200616
  Receipt Date: 20200727
  Transmission Date: 20201103
  Serious: Yes (Hospitalization)
  Sender: FDA-Public Use
  Company Number: AU-ROCHE-2621124

PATIENT
  Age: 33 Year
  Sex: Male
  Weight: 80.5 kg

DRUGS (4)
  1. ATEZOLIZUMAB. [Suspect]
     Active Substance: ATEZOLIZUMAB
     Indication: HEPATOCELLULAR CARCINOMA
     Dosage: ON 14/MAY/2020, RECEIVED THE MOST RECENT DOSE OF ATEZOLIZUMAB PRIOR TO THE EVENT.
     Route: 042
     Dates: start: 20191128
  2. CANNABIDIOL [Concomitant]
     Active Substance: CANNABIDIOL
  3. XL184 [Suspect]
     Active Substance: CABOZANTINIB
     Dosage: ON 02/JUN/2020,RECEIVED THE MOST RECENT DOSE OF CABOZANTINIB 20 MG QD ORAL PRIOR TO THE EVENT.
     Route: 048
  4. XL184 [Suspect]
     Active Substance: CABOZANTINIB
     Indication: HEPATOCELLULAR CARCINOMA
     Dosage: ON 02/JUN/2020,RECEIVED THE MOST RECENT DOSE OF CABOZANTINIB. 20 MG QD ORAL PRIOR TO THE EVENT.
     Route: 048
     Dates: start: 20191128

REACTIONS (2)
  - Adrenal insufficiency [Recovered/Resolved]
  - Hypoglycaemia [Recovered/Resolved]

NARRATIVE: CASE EVENT DATE: 20200602
